FAERS Safety Report 5504900-0 (Version None)
Quarter: 2007Q4

REPORT INFORMATION
  Report Type: 
  Country: None (occurrence: None)
  Receive Date: 20071102
  Receipt Date: 20071022
  Transmission Date: 20080405
  Serious: Yes (Hospitalization)
  Sender: FDA-Public Use
  Company Number: GB-WYE-H00933907

PATIENT
  Age: 55 Year
  Sex: Male

DRUGS (2)
  1. VENLAFAXIINE HCL [Suspect]
     Dosage: OVERDOSE AMOUNT UNKNOWN
     Route: 048
  2. PAROXETINE HCL [Suspect]
     Dosage: OVERDOSE AMOUNT UNKNOWN
     Route: 048

REACTIONS (4)
  - DRUG TOXICITY [None]
  - OVERDOSE [None]
  - VENTRICULAR EXTRASYSTOLES [None]
  - VENTRICULAR TACHYCARDIA [None]
